FAERS Safety Report 6162588-2 (Version None)
Quarter: 2009Q2

REPORT INFORMATION
  Report Type: 
  Country: None (occurrence: None)
  Receive Date: 20090421
  Receipt Date: 20071009
  Transmission Date: 20091009
  Serious: No
  Sender: FDA-Public Use
  Company Number: US-ASTRAZENECA-2006UW10660

PATIENT
  Age: 55 Year
  Sex: Female
  Weight: 74.8 kg

DRUGS (1)
  1. ARIMIDEX [Suspect]
     Indication: BREAST CANCER
     Route: 048
     Dates: start: 20030101

REACTIONS (3)
  - ALOPECIA [None]
  - DEPRESSION [None]
  - WEIGHT INCREASED [None]
